FAERS Safety Report 23697233 (Version 2)
Quarter: 2024Q2

REPORT INFORMATION
  Report Type: Spontaneous
  Country: IT (occurrence: IT)
  Receive Date: 20240402
  Receipt Date: 20240413
  Transmission Date: 20240717
  Serious: Yes (Hospitalization)
  Sender: FDA-Public Use
  Company Number: IT-TEVA-VS-3176718

PATIENT
  Age: 46 Year
  Sex: Male

DRUGS (15)
  1. LEVOFLOXACIN [Interacting]
     Active Substance: LEVOFLOXACIN
     Indication: Evidence based treatment
     Route: 065
  2. MEROPENEM [Suspect]
     Active Substance: MEROPENEM
     Indication: Respiratory tract infection
     Dosage: TIME INTERVAL: 0.33333333 DAYS: 2G THREE TIMES DAILY
     Route: 042
  3. SULFAMETHOXAZOLE\TRIMETHOPRIM [Suspect]
     Active Substance: SULFAMETHOXAZOLE\TRIMETHOPRIM
     Indication: Respiratory tract infection
     Dosage: TRIMETHOPRIM 160MG+ SULFAMETHOXAZOLE 800MG TWICE DAILY
     Route: 065
  4. OSELTAMIVIR [Concomitant]
     Active Substance: OSELTAMIVIR
     Indication: H1N1 influenza
     Route: 065
  5. CHOLECALCIFEROL [Concomitant]
     Active Substance: CHOLECALCIFEROL
     Indication: Osteoporosis
     Route: 065
  6. INSULIN LISPRO [Concomitant]
     Active Substance: INSULIN LISPRO
     Indication: Type 1 diabetes mellitus
     Route: 065
  7. CEPHALEXIN [Suspect]
     Active Substance: CEPHALEXIN
     Indication: Respiratory tract infection
     Dosage: 2G THREE TIMES DAILY
     Route: 065
  8. CEPHALEXIN [Suspect]
     Active Substance: CEPHALEXIN
     Indication: Respiratory tract infection
     Dosage: 2G THREE TIMES DAILY
     Route: 048
  9. FOSFOMYCIN [Suspect]
     Active Substance: FOSFOMYCIN
     Indication: Respiratory tract infection
     Route: 065
  10. AMIKACIN [Suspect]
     Active Substance: AMIKACIN
     Indication: Respiratory tract infection
     Route: 042
  11. CALCIUM CARBONATE [Concomitant]
     Active Substance: CALCIUM CARBONATE
     Indication: Osteoporosis
     Route: 065
  12. PIPERACILLIN SODIUM\TAZOBACTAM SODIUM [Interacting]
     Active Substance: PIPERACILLIN SODIUM\TAZOBACTAM SODIUM
     Indication: Respiratory tract infection
     Route: 065
  13. INSULIN NOS [Concomitant]
     Active Substance: INSULIN NOS
     Indication: Type 1 diabetes mellitus
     Route: 065
  14. AZITHROMYCIN [Suspect]
     Active Substance: AZITHROMYCIN
     Indication: Respiratory tract infection
     Route: 048
  15. MYCOPHENOLATE MOFETIL [Interacting]
     Active Substance: MYCOPHENOLATE MOFETIL
     Indication: Immunosuppressant drug therapy
     Dosage: 500?MG+1000 MG/DAY
     Route: 065

REACTIONS (3)
  - Drug ineffective [Unknown]
  - Immunosuppressant drug level decreased [Recovered/Resolved]
  - Drug interaction [Recovered/Resolved]
